FAERS Safety Report 16420261 (Version 1)
Quarter: 2019Q2

REPORT INFORMATION
  Report Type: Spontaneous
  Country: US (occurrence: US)
  Receive Date: 20190612
  Receipt Date: 20190612
  Transmission Date: 20190711
  Serious: No
  Sender: FDA-Public Use
  Company Number: US-PFIZER INC-2019247372

PATIENT
  Age: 47 Year
  Sex: Female
  Weight: 108.86 kg

DRUGS (2)
  1. LYRICA [Suspect]
     Active Substance: PREGABALIN
     Indication: NEURALGIA
     Dosage: 50 MG, 3X/DAY (IT SAYS TAKE EVERY 8 HOURS, HOWEVER I ONLY TOOK ONE PILL)
     Route: 048
     Dates: start: 20190603, end: 20190603
  2. HYDROCODONE BITARTRATE AND ACETAMINOPHEN [Concomitant]
     Active Substance: ACETAMINOPHEN\HYDROCODONE BITARTRATE
     Indication: MIGRAINE
     Dosage: UNK (TAKE ONE EVERY EIGHT HOURS AND I ONLY TAKE ONE A DAY, MOST OF THE DAY THAT GET RID OF MIGRAINE)
     Route: 048

REACTIONS (3)
  - Dizziness [Recovering/Resolving]
  - Migraine [Unknown]
  - Gait disturbance [Recovering/Resolving]

NARRATIVE: CASE EVENT DATE: 20190603
